FAERS Safety Report 21706411 (Version 1)
Quarter: 2022Q4

REPORT INFORMATION
  Report Type: Spontaneous
  Country: US (occurrence: US)
  Receive Date: 20221209
  Receipt Date: 20221209
  Transmission Date: 20230113
  Serious: No
  Sender: FDA-Public Use
  Company Number: US-AMNEAL PHARMACEUTICALS-2022-AMRX-03097

PATIENT
  Sex: Female

DRUGS (2)
  1. LIDOCAINE [Suspect]
     Active Substance: LIDOCAINE
     Indication: Pain
     Dosage: 1 PATCH, AS NEEDED
     Route: 061
  2. DIAZEPAM [Concomitant]
     Active Substance: DIAZEPAM
     Indication: Sciatica
     Dosage: 1 TABLETS,(5MG) 2 /DAY
     Route: 048

REACTIONS (5)
  - Illness [Recovering/Resolving]
  - Rash [Recovering/Resolving]
  - Ocular hyperaemia [Recovering/Resolving]
  - Product adhesion issue [Unknown]
  - Wrong technique in device usage process [Unknown]
